FAERS Safety Report 20701484 (Version 1)
Quarter: 2022Q2

REPORT INFORMATION
  Report Type: Spontaneous
  Country: US (occurrence: None)
  Receive Date: 20220412
  Receipt Date: 20220412
  Transmission Date: 20220720
  Serious: Yes (Death, Hospitalization)
  Sender: FDA-Public Use
  Company Number: None

PATIENT
  Sex: Male
  Weight: 22.7 kg

DRUGS (5)
  1. BUSULFAN [Suspect]
     Active Substance: BUSULFAN
     Dates: end: 20220204
  2. CYCLOPHOSPHAMIDE [Suspect]
     Active Substance: CYCLOPHOSPHAMIDE
     Indication: Prophylaxis against transplant rejection
     Dates: end: 20220321
  3. MYLOTARG [Suspect]
     Active Substance: GEMTUZUMAB OZOGAMICIN
     Dates: end: 20211010
  4. LAPINE T-LYMPHOCYTE IMMUNE GLOBULIN [Suspect]
     Active Substance: LAPINE T-LYMPHOCYTE IMMUNE GLOBULIN
     Indication: Prophylaxis against transplant rejection
     Dates: end: 20220312
  5. FLUDARABINE PHOSPHATE [Suspect]
     Active Substance: FLUDARABINE PHOSPHATE
     Indication: Prophylaxis against transplant rejection
     Dates: end: 20220315

REACTIONS (33)
  - Acute kidney injury [None]
  - Pulmonary oedema [None]
  - Blood pressure systolic decreased [None]
  - Hypothermia [None]
  - Hypotension [None]
  - Inflammatory marker increased [None]
  - Pyrexia [None]
  - Clostridium difficile infection [None]
  - Platelet count decreased [None]
  - Haemoglobin decreased [None]
  - Waist circumference increased [None]
  - Portal venous gas [None]
  - Pneumatosis [None]
  - Intestinal ischaemia [None]
  - Abdominal compartment syndrome [None]
  - CT hypotension complex [None]
  - Intestinal dilatation [None]
  - General physical health deterioration [None]
  - Lactic acidosis [None]
  - Haemodynamic instability [None]
  - Coagulopathy [None]
  - International normalised ratio increased [None]
  - Hepatic enzyme increased [None]
  - Aspartate aminotransferase increased [None]
  - Blood bilirubin increased [None]
  - Ammonia increased [None]
  - Multiple organ dysfunction syndrome [None]
  - Haemorrhage [None]
  - Renal failure [None]
  - Hyperkalaemia [None]
  - Arrhythmia [None]
  - Pulseless electrical activity [None]
  - Hepatic encephalopathy [None]

NARRATIVE: CASE EVENT DATE: 20220328
